FAERS Safety Report 17247627 (Version 1)
Quarter: 2020Q1

REPORT INFORMATION
  Report Type: Spontaneous
  Country: FR (occurrence: FR)
  Receive Date: 20200108
  Receipt Date: 20200108
  Transmission Date: 20200409
  Serious: Yes (Other)
  Sender: FDA-Public Use
  Company Number: FR-MYLANLABS-2020M1001345

PATIENT
  Age: 21054 Day
  Sex: Male
  Weight: 70 kg

DRUGS (5)
  1. TAHOR [Suspect]
     Active Substance: ATORVASTATIN CALCIUM
     Indication: ACUTE CORONARY SYNDROME
     Dosage: 80 DOSAGE FORM, QD
     Route: 048
     Dates: start: 20190207, end: 20190624
  2. BRILIQUE [Suspect]
     Active Substance: TICAGRELOR
     Indication: ACUTE CORONARY SYNDROME
     Dosage: 2 DOSAGE FORM, QD
     Route: 048
     Dates: start: 20190207, end: 20190405
  3. ASPIRINE PROTECT [Suspect]
     Active Substance: ASPIRIN
     Indication: ACUTE CORONARY SYNDROME
     Dosage: 1 DOSAGE FORM, QD
     Route: 048
     Dates: start: 20190207
  4. RAMIPRIL. [Suspect]
     Active Substance: RAMIPRIL
     Indication: ACUTE CORONARY SYNDROME
     Dosage: 1 DOSAGE FORM, BID
     Route: 048
     Dates: start: 20190207
  5. CARDENSIEL [Suspect]
     Active Substance: BISOPROLOL FUMARATE
     Indication: ACUTE CORONARY SYNDROME
     Dosage: 1.25 IN THE MORNING AND IN THE EVENING
     Route: 048
     Dates: start: 20190207

REACTIONS (8)
  - Muscle enzyme increased [Unknown]
  - Renal failure [Recovered/Resolved]
  - Gout [Unknown]
  - Tendonitis [Recovered/Resolved]
  - Inflammation [Recovered/Resolved]
  - Arthralgia [Recovered/Resolved]
  - Weight decreased [Recovered/Resolved]
  - Calculus urinary [Unknown]

NARRATIVE: CASE EVENT DATE: 20190213
